FAERS Safety Report 9969704 (Version 1)
Quarter: 2014Q1

REPORT INFORMATION
  Report Type: Spontaneous
  Country: US (occurrence: None)
  Receive Date: 20140304
  Receipt Date: 20140304
  Transmission Date: 20141002
  Serious: Yes (Hospitalization)
  Sender: FDA-Public Use
  Company Number: LIT-14-0007-W

PATIENT
  Age: 19 Year
  Sex: Female

DRUGS (1)
  1. AMLODIPINE [Suspect]
     Dosage: ONE DOSE
     Route: 048

REACTIONS (5)
  - Metabolic acidosis [None]
  - Hypotension [None]
  - Hyperglycaemia [None]
  - Angioedema [None]
  - Suicide attempt [None]
